FAERS Safety Report 8472719-7 (Version None)
Quarter: 2012Q2

REPORT INFORMATION
  Report Type: 
  Country: None (occurrence: None)
  Receive Date: 20120627
  Receipt Date: 20120626
  Transmission Date: 20120825
  Serious: Yes (Other)
  Sender: FDA-Public Use
  Company Number: SE-PFIZER INC-2012142911

PATIENT
  Age: 62 Year
  Sex: Female

DRUGS (4)
  1. ALPRAZOLAM [Concomitant]
     Dosage: UNK
  2. CISORDINOL [Concomitant]
  3. VARENICLINE TARTRATE [Suspect]
     Dosage: 0.6-0.8 MG
     Dates: end: 20120607
  4. XANOR - SLOW RELEASE [Concomitant]
     Dosage: 0.5 MG, UNK

REACTIONS (3)
  - MENTAL DISORDER [None]
  - ANXIETY DISORDER [None]
  - PANIC DISORDER [None]
